FAERS Safety Report 6984659-0 (Version None)
Quarter: 2010Q3

REPORT INFORMATION
  Report Type: 
  Country: None (occurrence: None)
  Receive Date: 20100914
  Receipt Date: 20100914
  Transmission Date: 20110219
  Serious: Yes (Other)
  Sender: FDA-Public Use
  Company Number: None

PATIENT
  Sex: Female

DRUGS (1)
  1. EQUATE EXTRA STRENGTH [Suspect]
     Dosage: TWICE A DAY
     Dates: start: 20100818, end: 20100818

REACTIONS (1)
  - ALOPECIA [None]
